FAERS Safety Report 8772048 (Version 2)
Quarter: 2013Q4

REPORT INFORMATION
  Report Type: Spontaneous
  Country: US (occurrence: US)
  Receive Date: 20120906
  Receipt Date: 20131101
  Transmission Date: 20140711
  Serious: No
  Sender: FDA-Public Use
  Company Number: US-009507513-1207USA008506

PATIENT
  Sex: 0

DRUGS (2)
  1. DULERA [Suspect]
     Dosage: 2 PATIENTS WERE ON 100/5 MILLIGRAM
  2. DULERA [Suspect]
     Dosage: 1 PATIENT ON 200/5 MILLIGRAM

REACTIONS (1)
  - Dysphonia [Recovered/Resolved]
